FAERS Safety Report 12704120 (Version 1)
Quarter: 2016Q3

REPORT INFORMATION
  Report Type: Spontaneous
  Country: GB (occurrence: GB)
  Receive Date: 20160831
  Receipt Date: 20160831
  Transmission Date: 20161109
  Serious: Yes (Other)
  Sender: FDA-Public Use
  Company Number: GB-TEVA-685202ISR

PATIENT
  Age: 64 Year
  Sex: Female

DRUGS (1)
  1. AZATHIOPRINE. [Suspect]
     Active Substance: AZATHIOPRINE
     Indication: MYELITIS TRANSVERSE
     Route: 065

REACTIONS (2)
  - Cytomegalovirus chorioretinitis [Unknown]
  - Optic neuritis [Unknown]
